FAERS Safety Report 20877029 (Version 2)
Quarter: 2022Q2

REPORT INFORMATION
  Report Type: Spontaneous
  Country: CO (occurrence: CO)
  Receive Date: 20220526
  Receipt Date: 20220629
  Transmission Date: 20220721
  Serious: Yes (Life-Threatening, Hospitalization, Other)
  Sender: FDA-Public Use
  Company Number: CO-PFIZER INC-202200747665

PATIENT
  Age: 51 Year
  Sex: Male

DRUGS (1)
  1. ENBREL [Suspect]
     Active Substance: ETANERCEPT
     Indication: Ankylosing spondylitis
     Dosage: 50 MG, UNSPECIFIED FRECUENCY
     Route: 058
     Dates: start: 2016

REACTIONS (6)
  - Autoimmune haemolytic anaemia [Recovering/Resolving]
  - Haemoglobin decreased [Recovering/Resolving]
  - Blood bilirubin abnormal [Recovering/Resolving]
  - Chromaturia [Recovered/Resolved]
  - Presyncope [Unknown]
  - Asthenia [Unknown]

NARRATIVE: CASE EVENT DATE: 20220507
